FAERS Safety Report 15948463 (Version 1)
Quarter: 2019Q1

REPORT INFORMATION
  Report Type: Spontaneous
  Country: CN (occurrence: CN)
  Receive Date: 20190212
  Receipt Date: 20190212
  Transmission Date: 20190417
  Serious: Yes (Life-Threatening, Hospitalization, Other)
  Sender: FDA-Public Use
  Company Number: CN-ACCORD-105718

PATIENT
  Age: 29 Year
  Sex: Female

DRUGS (12)
  1. DACTINOMYCIN [Suspect]
     Active Substance: DACTINOMYCIN
     Indication: CHORIOCARCINOMA
     Dosage: ON DAYS 1 AND 2, Q14
     Route: 042
  2. BEVACIZUMAB. [Suspect]
     Active Substance: BEVACIZUMAB
     Indication: GESTATIONAL TROPHOBLASTIC TUMOUR
     Dosage: DAY 2 OVER 1 HOUR
     Route: 042
  3. CISPLATIN. [Concomitant]
     Active Substance: CISPLATIN
     Indication: GESTATIONAL TROPHOBLASTIC TUMOUR
  4. PACLITAXEL/PACLITAXEL LIPOSOME [Suspect]
     Active Substance: PACLITAXEL
     Indication: CHORIOCARCINOMA
     Dosage: DAY 1 OF A 2-WEEK CYCLE
     Route: 042
  5. ETOPOSIDE. [Suspect]
     Active Substance: ETOPOSIDE
     Indication: CHORIOCARCINOMA
     Dosage: ON DAYS 1 AND 2, Q14
     Route: 042
     Dates: start: 2016
  6. CYCLOPHOSPHAMIDE/CYCLOPHOSPHAMIDE MONOHYDRATE [Suspect]
     Active Substance: CYCLOPHOSPHAMIDE
     Indication: GESTATIONAL TROPHOBLASTIC TUMOUR
     Dosage: ON DAY 8, Q14
     Route: 042
  7. BLEOMYCIN [Concomitant]
     Active Substance: BLEOMYCIN SULFATE
     Indication: CHORIOCARCINOMA
  8. GEMCITABINE/GEMCITABINE HYDROCHLORIDE [Suspect]
     Active Substance: GEMCITABINE\GEMCITABINE HYDROCHLORIDE
     Indication: GESTATIONAL TROPHOBLASTIC TUMOUR
     Dosage: DAY 1 OF A 2-WEEK CYCLE
     Route: 042
  9. FLOXURIDINE. [Concomitant]
     Active Substance: FLOXURIDINE
     Indication: CHORIOCARCINOMA
  10. VINCRISTINE/VINCRISTINE SULFATE [Suspect]
     Active Substance: VINCRISTINE
     Indication: METASTASES TO CENTRAL NERVOUS SYSTEM
     Dosage: ON DAY 8, Q14
     Route: 042
  11. METHOTREXATE. [Suspect]
     Active Substance: METHOTREXATE
     Indication: METASTASES TO LUNG
     Dosage: ON DAY 1, Q14 ,100 MG/M2
     Route: 042
     Dates: start: 2016
  12. OXALIPLATIN. [Suspect]
     Active Substance: OXALIPLATIN
     Indication: CHORIOCARCINOMA
     Dosage: DAY 1 OF A 2-WEEK CYCLE
     Route: 042

REACTIONS (4)
  - Neutropenia [Unknown]
  - Drug ineffective [Unknown]
  - Drug resistance [Recovering/Resolving]
  - Haematotoxicity [Unknown]

NARRATIVE: CASE EVENT DATE: 2016
